FAERS Safety Report 6978433-9 (Version None)
Quarter: 2010Q3

REPORT INFORMATION
  Report Type: 
  Country: None (occurrence: None)
  Receive Date: 20100913
  Receipt Date: 20100907
  Transmission Date: 20110219
  Serious: Yes (Other)
  Sender: FDA-Public Use
  Company Number: US-B.I. PHARMACEUTICALS,INC./RIDGEFIELD-2010-BP-10250BP

PATIENT
  Age: 90 Year
  Sex: Male

DRUGS (1)
  1. COMBIVENT [Suspect]
     Dates: start: 20020101

REACTIONS (1)
  - LUNG NEOPLASM MALIGNANT [None]
